FAERS Safety Report 6123147-0 (Version None)
Quarter: 2009Q1

REPORT INFORMATION
  Report Type: 
  Country: None (occurrence: None)
  Receive Date: 20090318
  Receipt Date: 20090305
  Transmission Date: 20090719
  Serious: Yes (Other)
  Sender: FDA-Public Use
  Company Number: FR-PFIZER INC-2009180267

PATIENT

DRUGS (7)
  1. DALACINE [Suspect]
     Indication: SKIN ULCER
     Dosage: 600 MG, 3X/DAY
     Route: 048
     Dates: start: 20090101
  2. CLAMOXYL [Suspect]
     Indication: SKIN ULCER
     Dosage: 3 G, 4X/DAY
     Route: 042
     Dates: start: 20081229, end: 20090105
  3. CLAMOXYL [Suspect]
     Dosage: UNK
     Route: 048
     Dates: start: 20080106
  4. OFLOCET [Suspect]
     Indication: SKIN ULCER
     Dosage: 200 MG, 3X/DAY
     Route: 048
     Dates: start: 20090101
  5. VANCOMYCIN [Concomitant]
     Route: 042
     Dates: start: 20081218, end: 20081218
  6. TARGOCID [Concomitant]
     Dates: start: 20081219, end: 20081229
  7. CLAVENTIN [Concomitant]
     Dates: start: 20081218, end: 20081229

REACTIONS (2)
  - EYELID OEDEMA [None]
  - RASH MACULO-PAPULAR [None]
